FAERS Safety Report 11255740 (Version 5)
Quarter: 2018Q3

REPORT INFORMATION
  Report Type: Report from Study
  Country: JP (occurrence: JP)
  Receive Date: 20150709
  Receipt Date: 20180928
  Transmission Date: 20181010
  Serious: Yes (Death, Life-Threatening, Other)
  Sender: FDA-Public Use
  Company Number: JP-SA-2015SA098158

PATIENT
  Age: 15 Year
  Sex: Male

DRUGS (8)
  1. CYCLOPHOSPHAMIDE MONOHYDRATE [Suspect]
     Active Substance: CYCLOPHOSPHAMIDE
     Indication: ACUTE LYMPHOCYTIC LEUKAEMIA
     Dosage: 250 MG/M2, QD
     Route: 042
     Dates: start: 20141023, end: 20141027
  2. ETOPOSIDE. [Suspect]
     Active Substance: ETOPOSIDE
     Indication: ACUTE LYMPHOCYTIC LEUKAEMIA
     Dosage: 100 MG/M2, QD
     Route: 042
     Dates: start: 20141023, end: 20141027
  3. AMPHOTERICIN B. [Concomitant]
     Active Substance: AMPHOTERICIN B
     Indication: PRODUCT USED FOR UNKNOWN INDICATION
     Dosage: UNK
     Route: 065
  4. CLOFARABINE. [Suspect]
     Active Substance: CLOFARABINE
     Indication: ACUTE LYMPHOCYTIC LEUKAEMIA
     Dosage: 40 MG/M2, QD
     Route: 042
     Dates: start: 20141023, end: 20141027
  5. MEROPEN [MEROPENEM TRIHYDRATE] [Concomitant]
     Indication: PRODUCT USED FOR UNKNOWN INDICATION
     Dosage: 0.75 G, QID
     Route: 042
     Dates: start: 20141107, end: 20141117
  6. ZOSYN [Concomitant]
     Active Substance: PIPERACILLIN SODIUM\TAZOBACTAM SODIUM
     Indication: PRODUCT USED FOR UNKNOWN INDICATION
     Dosage: 4.5 G, TID
     Route: 042
     Dates: start: 20141105, end: 20141107
  7. OMEPRAL [OMEPRAZOLE SODIUM] [Concomitant]
     Indication: PRODUCT USED FOR UNKNOWN INDICATION
     Dosage: 20 MG, BID
     Route: 042
     Dates: start: 20141028, end: 20141205
  8. DALACIN?S [Concomitant]
     Active Substance: CLINDAMYCIN
     Indication: PRODUCT USED FOR UNKNOWN INDICATION
     Dosage: 600 MG, TID
     Route: 042
     Dates: start: 20141029, end: 20141105

REACTIONS (5)
  - Herpes zoster [Recovered/Resolved]
  - Bronchopulmonary aspergillosis [Not Recovered/Not Resolved]
  - Febrile neutropenia [Recovering/Resolving]
  - Pericardial effusion [Recovering/Resolving]
  - Haematotoxicity [Recovered/Resolved]

NARRATIVE: CASE EVENT DATE: 20141023
